FAERS Safety Report 7405175-8 (Version None)
Quarter: 2011Q2

REPORT INFORMATION
  Report Type: 
  Country: None (occurrence: None)
  Receive Date: 20110411
  Receipt Date: 20110405
  Transmission Date: 20111010
  Serious: No
  Sender: FDA-Public Use
  Company Number: PT-ELI_LILLY_AND_COMPANY-PT201104000630

PATIENT
  Sex: Male

DRUGS (6)
  1. COLCHICINE [Concomitant]
  2. ANTIHYPERTENSIVES [Concomitant]
     Indication: BLOOD PRESSURE
  3. OMEPRAZOLE [Concomitant]
  4. ZOLPIDEM [Concomitant]
  5. CIALIS [Suspect]
     Indication: ERECTILE DYSFUNCTION
     Dosage: 20 MG, WEEKLY (1/W)
     Route: 048
  6. OLMESARTAN MEDOXOMIL [Concomitant]

REACTIONS (1)
  - VISION BLURRED [None]
